FAERS Safety Report 9311105 (Version 1)
Quarter: 2013Q2

REPORT INFORMATION
  Report Type: Spontaneous
  Country: US (occurrence: US)
  Receive Date: 20130528
  Receipt Date: 20130528
  Transmission Date: 20140414
  Serious: No
  Sender: FDA-Public Use
  Company Number: US-PFIZER INC-2013160121

PATIENT
  Sex: Female

DRUGS (2)
  1. LEVOXYL [Suspect]
     Dosage: 50 UG, UNK
  2. LEVOXYL [Suspect]
     Dosage: 77 UG, UNK

REACTIONS (3)
  - Anxiety [Unknown]
  - Mood swings [Unknown]
  - Nervousness [Unknown]
